FAERS Safety Report 5985305-5 (Version None)
Quarter: 2008Q4

REPORT INFORMATION
  Report Type: 
  Country: None (occurrence: None)
  Receive Date: 20081203
  Receipt Date: 20081119
  Transmission Date: 20090506
  Serious: Yes (Life-Threatening, Hospitalization)
  Sender: FDA-Public Use
  Company Number: RENA-10940

PATIENT
  Age: 75 Year
  Sex: Female
  Weight: 36 kg

DRUGS (8)
  1. RENAGEL [Suspect]
     Indication: HYPERPHOSPHATAEMIA
     Dosage: 2.25 G, QD, ORAL
     Route: 048
     Dates: start: 20030826, end: 20040303
  2. FUROSEMIDE [Concomitant]
  3. FALECALCITRIOL (FALECALCITRIOL) [Concomitant]
  4. SOFALCONE (SOFALCONE) [Concomitant]
  5. DILAZEP DIHYDROCHLORIDE (DILAZEP DIHYDROCHLORIDE) [Concomitant]
  6. NIZATIDINE [Concomitant]
  7. NITROGLYCERIN [Concomitant]
  8. HERBAL EXTRACTS NOS [Concomitant]

REACTIONS (19)
  - ABDOMINAL ABSCESS [None]
  - ACUTE RESPIRATORY DISTRESS SYNDROME [None]
  - ASCITES [None]
  - BLOOD CREATININE INCREASED [None]
  - BLOOD PRESSURE SYSTOLIC INCREASED [None]
  - BLOOD UREA INCREASED [None]
  - CONSTIPATION [None]
  - CONTINUOUS HAEMODIAFILTRATION [None]
  - DEPRESSED LEVEL OF CONSCIOUSNESS [None]
  - DISSEMINATED INTRAVASCULAR COAGULATION [None]
  - ENTEROCUTANEOUS FISTULA [None]
  - ILEUS [None]
  - LARGE INTESTINE PERFORATION [None]
  - MULTI-ORGAN FAILURE [None]
  - NO THERAPEUTIC RESPONSE [None]
  - PERITONITIS [None]
  - POST PROCEDURAL COMPLICATION [None]
  - SEPTIC SHOCK [None]
  - WHITE BLOOD CELL COUNT DECREASED [None]
